FAERS Safety Report 10040861 (Version 1)
Quarter: 2014Q1

REPORT INFORMATION
  Report Type: Spontaneous
  Country: US (occurrence: US)
  Receive Date: 20140327
  Receipt Date: 20140327
  Transmission Date: 20141002
  Serious: No
  Sender: FDA-Public Use
  Company Number: US-PFIZER INC-2014083524

PATIENT
  Age: 76 Year
  Sex: Male
  Weight: 78.01 kg

DRUGS (6)
  1. LYRICA [Suspect]
     Indication: NERVE COMPRESSION
     Dosage: 75 MG, 3X/DAY
     Route: 048
     Dates: start: 201402
  2. LYRICA [Suspect]
     Dosage: 50 MG, 2X/DAY
     Route: 048
  3. LYRICA [Suspect]
     Dosage: UNK
  4. ALTACE [Concomitant]
     Indication: CARDIAC DISORDER
     Dosage: 25 MG, DAILY
  5. ASPIRIN [Concomitant]
     Indication: ANTICOAGULANT THERAPY
     Dosage: 81 MG, DAILY
  6. PLAVIX [Concomitant]
     Indication: ANTICOAGULANT THERAPY
     Dosage: 75 MG, DAILY

REACTIONS (3)
  - Dry mouth [Not Recovered/Not Resolved]
  - Logorrhoea [Not Recovered/Not Resolved]
  - Therapeutic response unexpected [Unknown]
